FAERS Safety Report 23384141 (Version 1)
Quarter: 2024Q1

REPORT INFORMATION
  Report Type: Spontaneous
  Country: US (occurrence: None)
  Receive Date: 20240109
  Receipt Date: 20240109
  Transmission Date: 20240410
  Serious: No
  Sender: FDA-Public Use
  Company Number: None

PATIENT
  Age: 56 Year
  Sex: Female
  Weight: 114.76 kg

DRUGS (1)
  1. TREMFYA [Suspect]
     Active Substance: GUSELKUMAB
     Indication: Psoriatic arthropathy
     Dosage: INJECT 100MG SUBCUTANEOUSLY  ON DAY  0 AND  DAY 28  AS  DIRECTED.
     Route: 058
     Dates: start: 202012

REACTIONS (2)
  - Diverticulum [None]
  - Condition aggravated [None]
